FAERS Safety Report 5930821-5 (Version None)
Quarter: 2008Q4

REPORT INFORMATION
  Report Type: 
  Country: None (occurrence: None)
  Receive Date: 20081027
  Receipt Date: 20080916
  Transmission Date: 20090506
  Serious: No
  Sender: FDA-Public Use
  Company Number: US-BAYER-200833921NA

PATIENT
  Age: 44 Year
  Sex: Female

DRUGS (1)
  1. MIRENA [Suspect]
     Indication: CONTRACEPTION
     Route: 048
     Dates: start: 20080101, end: 20080916

REACTIONS (5)
  - COMPLICATION OF DEVICE INSERTION [None]
  - HEADACHE [None]
  - HORMONE LEVEL ABNORMAL [None]
  - IUCD COMPLICATION [None]
  - MOOD ALTERED [None]
